FAERS Safety Report 5285621-9 (Version None)
Quarter: 2007Q1

REPORT INFORMATION
  Report Type: 
  Country: None (occurrence: None)
  Receive Date: 20070116
  Receipt Date: 20061129
  Transmission Date: 20070707
  Serious: No
  Sender: FDA-Public Use
  Company Number: 2006SP004202

PATIENT
  Age: 85 Year
  Sex: Female
  Weight: 63.5036 kg

DRUGS (8)
  1. LUNESTA [Suspect]
     Indication: INSOMNIA
     Dosage: 2 MG;1X;ORAL
     Route: 048
     Dates: start: 20061101, end: 20061101
  2. HYZAAR [Concomitant]
  3. AMLODIPINE BESYLATE [Concomitant]
  4. METOPROLOL SUCCINATE [Concomitant]
  5. PANTOPRAZOLE SODIUM [Concomitant]
  6. ADVIL [Concomitant]
  7. ASPIRIN [Concomitant]
  8. SIMVASTATIN [Concomitant]

REACTIONS (1)
  - DYSGEUSIA [None]
